FAERS Safety Report 14797865 (Version 4)
Quarter: 2018Q2

REPORT INFORMATION
  Report Type: Spontaneous
  Country: US (occurrence: US)
  Receive Date: 20180424
  Receipt Date: 20180608
  Transmission Date: 20180711
  Serious: Yes (Death)
  Sender: FDA-Public Use
  Company Number: US-VIFOR (INTERNATIONAL) INC.-VIT-2018-03811

PATIENT
  Age: 57 Year
  Sex: Female
  Weight: 67.19 kg

DRUGS (24)
  1. LASIX [Concomitant]
     Active Substance: FUROSEMIDE
  2. ASCORBIC ACID~~PYRIDOXINE HYDROCHLORIDE~~COLECALCIFEROL~~CYANOCOBALAMIN~~RIBOFLAVIN~~NICOTINAMIDE~~R [Concomitant]
  3. PANTOPRAZOLE SODIUM SESQUIHYDRATE [Concomitant]
     Active Substance: PANTOPRAZOLE SODIUM
  4. TRAZODONE HYDROCHLORIDE. [Concomitant]
     Active Substance: TRAZODONE HYDROCHLORIDE
  5. ACETYLSALICYLIC ACID [Concomitant]
     Active Substance: ASPIRIN
  6. HUMALOG [Concomitant]
     Active Substance: INSULIN LISPRO
  7. GABAPENTIN. [Concomitant]
     Active Substance: GABAPENTIN
  8. OLANZAPINE. [Concomitant]
     Active Substance: OLANZAPINE
  9. VELTASSA [Suspect]
     Active Substance: PATIROMER
     Indication: HYPERKALAEMIA
     Route: 048
     Dates: start: 20180120
  10. ATORVASTATIN CALCIUM. [Concomitant]
     Active Substance: ATORVASTATIN CALCIUM
  11. FENOFIBRATE. [Concomitant]
     Active Substance: FENOFIBRATE
  12. VELTASSA [Suspect]
     Active Substance: PATIROMER
     Indication: PANCREATIC CARCINOMA
  13. AMITRIPTYLINE HYDROCHLORIDE. [Concomitant]
     Active Substance: AMITRIPTYLINE HYDROCHLORIDE
  14. BISACODYL. [Concomitant]
     Active Substance: BISACODYL
  15. METOPROLOL TARTRATE. [Concomitant]
     Active Substance: METOPROLOL TARTRATE
  16. SODIUM POLYSTYRENE SULFONATE. [Concomitant]
     Active Substance: SODIUM POLYSTYRENE SULFONATE
  17. PARACETAMOL [Concomitant]
     Active Substance: ACETAMINOPHEN
  18. METRONIDAZOLE. [Concomitant]
     Active Substance: METRONIDAZOLE
  19. VALPROATE SODIUM. [Concomitant]
     Active Substance: VALPROATE SODIUM
  20. ASCORBIC ACID. [Concomitant]
     Active Substance: ASCORBIC ACID
  21. FERROUS SULFATE. [Concomitant]
     Active Substance: FERROUS SULFATE
  22. GLUCOPHAGE [Concomitant]
     Active Substance: METFORMIN HYDROCHLORIDE
  23. IPRATROPIUM BROMIDE. [Concomitant]
     Active Substance: IPRATROPIUM BROMIDE
  24. PLAVIX [Concomitant]
     Active Substance: CLOPIDOGREL BISULFATE

REACTIONS (4)
  - Off label use [Unknown]
  - Constipation [Recovered/Resolved]
  - Product taste abnormal [Recovered/Resolved]
  - Malaise [Recovered/Resolved]

NARRATIVE: CASE EVENT DATE: 2018
